FAERS Safety Report 21362685 (Version 1)
Quarter: 2022Q3

REPORT INFORMATION
  Report Type: Spontaneous
  Country: US (occurrence: US)
  Receive Date: 20220922
  Receipt Date: 20220922
  Transmission Date: 20221026
  Serious: Yes (Death, Other)
  Sender: FDA-Public Use
  Company Number: US-SA-SAC20220921000263

PATIENT

DRUGS (2)
  1. ZANTAC [Suspect]
     Active Substance: RANITIDINE HYDROCHLORIDE
     Dosage: UNK (PRESCRIPTION)
     Route: 065
     Dates: start: 2007, end: 2016
  2. RANITIDINE HYDROCHLORIDE [Suspect]
     Active Substance: RANITIDINE HYDROCHLORIDE
     Dosage: UNK (PRESCRIPTION AND OVER THE COUNTER DRUG)
     Dates: start: 2007, end: 2016

REACTIONS (1)
  - Colorectal cancer [Fatal]
